FAERS Safety Report 23952027 (Version 3)
Quarter: 2025Q1

REPORT INFORMATION
  Report Type: Spontaneous
  Country: US (occurrence: US)
  Receive Date: 20240607
  Receipt Date: 20250116
  Transmission Date: 20250409
  Serious: Yes (Other)
  Sender: PFIZER
  Company Number: US-PFIZER INC-PV202400038040

PATIENT
  Age: 80 Year
  Sex: Female
  Weight: 67.59 kg

DRUGS (3)
  1. IBRANCE [Suspect]
     Active Substance: PALBOCICLIB
     Indication: Breast cancer stage IV
     Route: 048
     Dates: start: 201611
  2. IBRANCE [Suspect]
     Active Substance: PALBOCICLIB
     Indication: Breast cancer metastatic
  3. EXEMESTANE [Concomitant]
     Active Substance: EXEMESTANE
     Indication: Breast cancer female

REACTIONS (3)
  - Pulmonary embolism [Unknown]
  - Product dose omission issue [Unknown]
  - Laryngitis [Unknown]

NARRATIVE: CASE EVENT DATE: 20220101
